FAERS Safety Report 24915220 (Version 1)
Quarter: 2025Q1

REPORT INFORMATION
  Report Type: Spontaneous
  Country: BR (occurrence: BR)
  Receive Date: 20250203
  Receipt Date: 20250203
  Transmission Date: 20250409
  Serious: Yes (Other)
  Sender: SANOFI AVENTIS
  Company Number: BR-SA-2025SA028663

PATIENT
  Sex: Male

DRUGS (4)
  1. LANTUS SOLOSTAR [Suspect]
     Active Substance: INSULIN GLARGINE
     Route: 065
  2. ATENOLOL [Concomitant]
     Active Substance: ATENOLOL
  3. SIMVASTATIN [Concomitant]
     Active Substance: SIMVASTATIN
  4. PURAN [Concomitant]
     Active Substance: LEVOTHYROXINE SODIUM

REACTIONS (2)
  - Dementia [Unknown]
  - Product storage error [Unknown]
